FAERS Safety Report 10478522 (Version 1)
Quarter: 2014Q3

REPORT INFORMATION
  Report Type: Spontaneous
  Country: US (occurrence: None)
  Receive Date: 20140925
  Receipt Date: 20140925
  Transmission Date: 20150326
  Serious: Yes (Other)
  Sender: FDA-Public Use
  Company Number: None

PATIENT
  Age: 46 Year
  Sex: Male
  Weight: 95.26 kg

DRUGS (1)
  1. WARFIN [Suspect]
     Active Substance: WARFARIN
     Indication: PULMONARY THROMBOSIS
     Dosage: 1 PILL 6 DAYS 2 PER 1 DAY, AT BEDTIME , TAKEN BY MOUTH
     Route: 048

REACTIONS (1)
  - Vision blurred [None]

NARRATIVE: CASE EVENT DATE: 20140924
